FAERS Safety Report 7262075-4 (Version None)
Quarter: 2011Q1

REPORT INFORMATION
  Report Type: 
  Country: None (occurrence: None)
  Receive Date: 20110130
  Receipt Date: 20101102
  Transmission Date: 20110831
  Serious: No
  Sender: FDA-Public Use
  Company Number: US-ABBOTT-10P-163-0683629-00

PATIENT
  Sex: Male
  Weight: 74.002 kg

DRUGS (4)
  1. AZATHIOPRINE [Concomitant]
     Indication: CROHN'S DISEASE
     Dates: start: 20100201
  2. HUMIRA [Suspect]
     Indication: CROHN'S DISEASE
     Dates: start: 20101005, end: 20101019
  3. LAMISIL [Concomitant]
     Indication: FUNGAL INFECTION
     Dates: start: 20101003
  4. ENTOCORT EC [Concomitant]
     Indication: CROHN'S DISEASE
     Dates: start: 20100201

REACTIONS (2)
  - HEADACHE [None]
  - BLOOD PRESSURE INCREASED [None]
